FAERS Safety Report 6891878-0 (Version None)
Quarter: 2010Q3

REPORT INFORMATION
  Report Type: 
  Country: None (occurrence: None)
  Receive Date: 20100731
  Receipt Date: 20071117
  Transmission Date: 20110219
  Serious: No
  Sender: FDA-Public Use
  Company Number: US-PFIZER INC-2007077197

PATIENT
  Age: 45 Year
  Sex: Female
  Weight: 73.94 kg

DRUGS (1)
  1. CAMPTOSAR [Suspect]
     Indication: COLON CANCER
     Route: 042
     Dates: start: 20070906

REACTIONS (2)
  - ANXIETY [None]
  - HYPERHIDROSIS [None]
